FAERS Safety Report 8341363-4 (Version None)
Quarter: 2012Q2

REPORT INFORMATION
  Report Type: 
  Country: None (occurrence: None)
  Receive Date: 20120507
  Receipt Date: 20091124
  Transmission Date: 20120825
  Serious: No
  Sender: FDA-Public Use
  Company Number: US-TEVA-2009029270

PATIENT
  Sex: Male
  Weight: 78.088 kg

DRUGS (2)
  1. BENADRYL [Suspect]
     Dates: start: 20090101, end: 20090101
  2. TREANDA [Suspect]
     Indication: NON-HODGKIN'S LYMPHOMA
     Route: 042
     Dates: start: 20090801, end: 20090101

REACTIONS (2)
  - RASH MACULO-PAPULAR [None]
  - VISUAL ACUITY REDUCED [None]
